FAERS Safety Report 16321378 (Version 2)
Quarter: 2019Q2

REPORT INFORMATION
  Report Type: Spontaneous
  Country: US (occurrence: US)
  Receive Date: 20190516
  Receipt Date: 20190528
  Transmission Date: 20190711
  Serious: Yes (Other)
  Sender: FDA-Public Use
  Company Number: US-AKORN PHARMACEUTICALS-2019AKN00988

PATIENT
  Sex: Female
  Weight: 40.36 kg

DRUGS (3)
  1. MYORISAN [Suspect]
     Active Substance: ISOTRETINOIN
     Indication: ACNE
     Dosage: 30 MG, 1X/DAY
     Route: 048
     Dates: start: 201809, end: 201810
  2. MYORISAN [Suspect]
     Active Substance: ISOTRETINOIN
     Dosage: 30 MG, 1X/DAY
     Route: 048
     Dates: start: 201901, end: 201901
  3. MYORISAN [Suspect]
     Active Substance: ISOTRETINOIN
     Dosage: 30 MG, 2X/DAY
     Route: 048
     Dates: start: 201810, end: 201901

REACTIONS (9)
  - Ear pain [Recovering/Resolving]
  - Eustachian tube disorder [Recovering/Resolving]
  - Off label use [Recovered/Resolved]
  - Menorrhagia [Recovered/Resolved]
  - Feeling of despair [Recovered/Resolved]
  - Vitamin D decreased [Unknown]
  - Seborrhoea [Unknown]
  - Acne [Recovering/Resolving]
  - Blood iron decreased [Unknown]

NARRATIVE: CASE EVENT DATE: 2018
